FAERS Safety Report 4652246-5 (Version None)
Quarter: 2005Q2

REPORT INFORMATION
  Report Type: 
  Country: None (occurrence: None)
  Receive Date: 20050502
  Receipt Date: 20050420
  Transmission Date: 20051028
  Serious: Yes (Other)
  Sender: FDA-Public Use
  Company Number: 2005063453

PATIENT
  Age: 80 Year
  Sex: Male

DRUGS (3)
  1. NEURONTIN [Suspect]
     Indication: POST HERPETIC NEURALGIA
     Dosage: 900 MG (300 MG, 3 IN 1 D), ORAL
     Route: 048
     Dates: start: 20050407, end: 20050414
  2. PREDNISONE TAB [Suspect]
     Indication: ILL-DEFINED DISORDER
     Dates: start: 20050407
  3. VALACICLOVIR HYDROCHLORIDE (VALACICLOVIR HYDROCHLORIDE) [Concomitant]
     Indication: ILL-DEFINED DISORDER
     Dates: start: 20050331, end: 20050401

REACTIONS (1)
  - THROMBOPHLEBITIS [None]
